FAERS Safety Report 8459049-4 (Version None)
Quarter: 2012Q2

REPORT INFORMATION
  Report Type: 
  Country: None (occurrence: None)
  Receive Date: 20120622
  Receipt Date: 20120611
  Transmission Date: 20120825
  Serious: Yes (Other)
  Sender: FDA-Public Use
  Company Number: US-FRI-1000031300

PATIENT
  Age: 59 Year
  Sex: Female
  Weight: 74.84 kg

DRUGS (3)
  1. VIIBRYD [Suspect]
     Dosage: 20 MG
     Route: 048
  2. VIIBRYD [Suspect]
     Dosage: 40 MG
     Route: 048
     Dates: end: 20120201
  3. VIIBRYD [Suspect]
     Indication: MAJOR DEPRESSION
     Dosage: 10 MG
     Route: 048
     Dates: start: 20110301

REACTIONS (4)
  - TACHYCARDIA [None]
  - EMOTIONAL DISTRESS [None]
  - WEIGHT INCREASED [None]
  - HYPERTENSION [None]
